FAERS Safety Report 7391659 (Version 3)
Quarter: 2014Q2

REPORT INFORMATION
  Report Type: Spontaneous
  Country: FR (occurrence: FR)
  Receive Date: 20100518
  Receipt Date: 20140522
  Transmission Date: 20141212
  Serious: Yes (Hospitalization)
  Sender: FDA-Public Use
  Company Number: FR-PFIZER INC-FR-WYE-H15055110

PATIENT
  Age: 80 Year
  Sex: Male

DRUGS (16)
  1. RAMIPRIL [Suspect]
     Dosage: UNK
     Route: 048
     Dates: start: 201002, end: 20100322
  2. CORDARONE [Suspect]
     Dosage: UNK
     Route: 048
     Dates: start: 200910, end: 20100322
  3. PREVISCAN [Suspect]
     Dosage: UNK
     Route: 048
     Dates: start: 200910, end: 20100310
  4. CARDENSIEL [Suspect]
     Dosage: UNK
     Route: 048
     Dates: start: 200910, end: 20100322
  5. INEXIUM /01479302/ [Suspect]
     Dosage: UNK
     Route: 048
     Dates: start: 200909, end: 20100322
  6. CRESTOR [Suspect]
     Dosage: UNK
     Route: 048
     Dates: start: 201001, end: 20100322
  7. OMACOR [Suspect]
     Dosage: UNK
     Dates: start: 201001, end: 20100322
  8. KARDEGIC [Suspect]
     Dosage: UNK
     Dates: start: 200911, end: 20100322
  9. TARDYFERON [Suspect]
     Dosage: UNK
     Dates: start: 201001, end: 20100322
  10. AUGMENTIN [Concomitant]
     Dosage: UNK
  11. KETEK [Concomitant]
     Dosage: UNK
  12. COUMADINE [Concomitant]
     Dosage: UNK
  13. APROVEL [Concomitant]
     Dosage: UNK
  14. COLCHICINE [Concomitant]
     Dosage: UNK
  15. SPECIAFOLDINE [Concomitant]
     Dosage: UNK
  16. POLARAMINE [Concomitant]
     Dosage: UNK

REACTIONS (8)
  - Vascular purpura [Not Recovered/Not Resolved]
  - Erysipelas [Recovering/Resolving]
  - Pyrexia [Unknown]
  - Productive cough [Unknown]
  - Fatigue [Unknown]
  - Dyspnoea [Unknown]
  - Chest pain [Unknown]
  - Palpitations [Unknown]
